FAERS Safety Report 22007917 (Version 1)
Quarter: 2023Q1

REPORT INFORMATION
  Report Type: Spontaneous
  Country: PL (occurrence: PL)
  Receive Date: 20230218
  Receipt Date: 20230218
  Transmission Date: 20230418
  Serious: Yes (Hospitalization, Other)
  Sender: FDA-Public Use
  Company Number: None

PATIENT
  Age: 78 Year
  Sex: Female

DRUGS (7)
  1. AMLODIPINE BESYLATE [Interacting]
     Active Substance: AMLODIPINE BESYLATE
     Indication: Hypertension
     Dosage: 10 MG, 1X/DAY
  2. METOPROLOL [Suspect]
     Active Substance: METOPROLOL
     Indication: Hypertension
     Dosage: 12.5 MG, 1X/DAY
  3. ACETAMINOPHEN [Suspect]
     Active Substance: ACETAMINOPHEN
     Indication: Bronchitis
  4. ZOFENOPRIL CALCIUM [Suspect]
     Active Substance: ZOFENOPRIL CALCIUM
     Indication: Cardiac failure
     Dosage: 7.5 MG, 1X/DAY
  5. TORSEMIDE [Suspect]
     Active Substance: TORSEMIDE
     Indication: Hypertension
     Dosage: 5 MG, 1X/DAY
  6. ERDOSTEINE [Suspect]
     Active Substance: ERDOSTEINE
     Indication: Bronchitis
     Dosage: 300 MG, 2X/DAY
  7. CLARITHROMYCIN [Interacting]
     Active Substance: CLARITHROMYCIN
     Indication: Bronchitis
     Dosage: 500 MG, 2X/DAY (12 H)

REACTIONS (9)
  - Bronchitis [Recovering/Resolving]
  - Thirst [Unknown]
  - Oedema peripheral [Unknown]
  - Hyponatraemia [Unknown]
  - Asthenia [Unknown]
  - Vomiting [Unknown]
  - Peripheral swelling [Unknown]
  - Nausea [Unknown]
  - Drug interaction [Unknown]
